FAERS Safety Report 6696376-5 (Version None)
Quarter: 2010Q2

REPORT INFORMATION
  Report Type: 
  Country: None (occurrence: None)
  Receive Date: 20100426
  Receipt Date: 20100419
  Transmission Date: 20101027
  Serious: Yes (Other)
  Sender: FDA-Public Use
  Company Number: DE-JNJFOC-20100210963

PATIENT
  Sex: Female
  Weight: 71 kg

DRUGS (5)
  1. DURAGESIC-100 [Suspect]
     Indication: PROCEDURAL PAIN
     Route: 062
  2. DURAGESIC-100 [Suspect]
     Route: 062
  3. DIPYRONE TAB [Concomitant]
     Route: 065
  4. ENALAPRIL COMP [Concomitant]
     Route: 065
  5. ENALAPRIL MALEATE [Concomitant]
     Route: 065

REACTIONS (6)
  - AGGRESSION [None]
  - CRYING [None]
  - DELUSION [None]
  - DEPRESSION [None]
  - DIZZINESS [None]
  - THINKING ABNORMAL [None]
